FAERS Safety Report 5385100-4 (Version None)
Quarter: 2007Q3

REPORT INFORMATION
  Report Type: 
  Country: None (occurrence: None)
  Receive Date: 20070705
  Receipt Date: 20070705
  Transmission Date: 20080115
  Serious: No
  Sender: FDA-Public Use
  Company Number: None

PATIENT
  Age: 47 Year
  Sex: Female

DRUGS (1)
  1. FENTANYL TRANSDERM PATCH 1'S-50MCG ALZTA(SANDOZ) [Suspect]
     Indication: PAIN
     Dosage: APPLY 1 PATCH EVERY 48 HOURS
     Dates: start: 20061201

REACTIONS (3)
  - DRUG INEFFECTIVE [None]
  - DRUG LEVEL CHANGED [None]
  - THERAPEUTIC RESPONSE UNEXPECTED WITH DRUG SUBSTITUTION [None]
